FAERS Safety Report 12674358 (Version 1)
Quarter: 2016Q3

REPORT INFORMATION
  Report Type: Spontaneous
  Country: US (occurrence: US)
  Receive Date: 20160822
  Receipt Date: 20160822
  Transmission Date: 20161109
  Serious: No
  Sender: FDA-Public Use
  Company Number: US-BEH-2015056258

PATIENT
  Sex: Male
  Weight: 108.86 kg

DRUGS (28)
  1. PREDNISONE. [Concomitant]
     Active Substance: PREDNISONE
  2. MORPHINE [Concomitant]
     Active Substance: MORPHINE
  3. KETOCONAZOLE. [Concomitant]
     Active Substance: KETOCONAZOLE
  4. IPRATROPIUM BR [Concomitant]
  5. FORADIL [Concomitant]
     Active Substance: FORMOTEROL FUMARATE
  6. DIPHENHYDRAMINE. [Concomitant]
     Active Substance: DIPHENHYDRAMINE
  7. SODIUM CHLORIDE. [Concomitant]
     Active Substance: SODIUM CHLORIDE
  8. XYZAL [Concomitant]
     Active Substance: LEVOCETIRIZINE DIHYDROCHLORIDE
  9. ZEMAIRA [Suspect]
     Active Substance: .ALPHA.1-PROTEINASE INHIBITOR HUMAN
     Indication: ALPHA-1 ANTI-TRYPSIN DEFICIENCY
  10. XOPENEX [Concomitant]
     Active Substance: LEVALBUTEROL HYDROCHLORIDE
  11. SPIRIVA [Concomitant]
     Active Substance: TIOTROPIUM BROMIDE MONOHYDRATE
  12. NEOMYCIN/POLY/HC EYE DROPS [Concomitant]
  13. ALBUTEROL. [Concomitant]
     Active Substance: ALBUTEROL
  14. L-M-X [Concomitant]
  15. OXYGEN. [Concomitant]
     Active Substance: OXYGEN
  16. COMBIVENT [Concomitant]
     Active Substance: ALBUTEROL SULFATE\IPRATROPIUM BROMIDE
  17. SENNA [Concomitant]
     Active Substance: SENNA LEAF\SENNOSIDES\SENNOSIDES A AND B
  18. MUCOMYST [Concomitant]
     Active Substance: ACETYLCYSTEINE
  19. NORCO [Concomitant]
     Active Substance: ACETAMINOPHEN\HYDROCODONE BITARTRATE
  20. ASMANEX [Concomitant]
     Active Substance: MOMETASONE FUROATE
  21. MULTI-VITAMIN [Concomitant]
     Active Substance: .ALPHA.-TOCOPHEROL ACETATE, DL-\ASCORBIC ACID\CYANOCOBALAMIN\FLUORIDE ION\FOLIC ACID\NIACIN\PYRIDOXINE\RIBOFLAVIN\THIAMINE\VITAMIN A\VITAMIN D
  22. EPIPEN [Concomitant]
     Active Substance: EPINEPHRINE
  23. PREDNISONE. [Concomitant]
     Active Substance: PREDNISONE
  24. LEVAQUIN [Concomitant]
     Active Substance: LEVOFLOXACIN
  25. CEFTIN [Concomitant]
     Active Substance: CEFUROXIME AXETIL
  26. PEPCID [Concomitant]
     Active Substance: FAMOTIDINE
  27. SINGULAIR [Concomitant]
     Active Substance: MONTELUKAST SODIUM
  28. THEOPHYLLINE [Concomitant]
     Active Substance: THEOPHYLLINE ANHYDROUS

REACTIONS (1)
  - Upper respiratory tract infection [Unknown]
